FAERS Safety Report 25318090 (Version 1)
Quarter: 2025Q2

REPORT INFORMATION
  Report Type: Spontaneous
  Country: US (occurrence: None)
  Receive Date: 20250514
  Receipt Date: 20250514
  Transmission Date: 20250716
  Serious: Yes (Life-Threatening)
  Sender: FDA-CTU
  Company Number: None

PATIENT
  Age: 39 Year
  Sex: Female

DRUGS (1)
  1. HUMIRA [Suspect]
     Active Substance: ADALIMUMAB
     Indication: Rheumatoid arthritis
     Dosage: FREQUENCY : EVERY OTHER WEEK;?

REACTIONS (8)
  - Urticaria [None]
  - Lip swelling [None]
  - Dysphagia [None]
  - Fall [None]
  - Dyspnoea [None]
  - Foot fracture [None]
  - Ankle fracture [None]
  - Therapy interrupted [None]
